FAERS Safety Report 5427772-1 (Version None)
Quarter: 2007Q3

REPORT INFORMATION
  Report Type: 
  Country: None (occurrence: None)
  Receive Date: 20070823
  Receipt Date: 20070814
  Transmission Date: 20080115
  Serious: Yes (Hospitalization)
  Sender: FDA-Public Use
  Company Number: 236166K06USA

PATIENT
  Age: 50 Year
  Sex: Male

DRUGS (1)
  1. REBIF [Suspect]
     Indication: MULTIPLE SCLEROSIS
     Dosage: 44 MCG, 3 IN 1 WEEKS, SUBCUTANEOUS
     Route: 058
     Dates: start: 20020619

REACTIONS (4)
  - BLINDNESS UNILATERAL [None]
  - CEREBROVASCULAR ACCIDENT [None]
  - HEMIANOPIA HOMONYMOUS [None]
  - TRANSIENT ISCHAEMIC ATTACK [None]
